FAERS Safety Report 4544601-9 (Version None)
Quarter: 2004Q4

REPORT INFORMATION
  Report Type: 
  Country: None (occurrence: None)
  Receive Date: 20041230
  Receipt Date: 20041217
  Transmission Date: 20050328
  Serious: Yes (Life-Threatening, Hospitalization, Other)
  Sender: FDA-Public Use
  Company Number: 2004106601

PATIENT
  Age: 75 Year
  Sex: Female
  Weight: 64.4 kg

DRUGS (13)
  1. HYDROCORTISONE [Suspect]
     Indication: ADRENOCORTICAL INSUFFICIENCY CHRONIC
     Dosage: 40 MG (2 IN 1 D), ORAL
     Route: 048
     Dates: start: 19980101
  2. DRUG USED IN DIABETES [Concomitant]
  3. AMLODIPINE BESYLATE [Concomitant]
  4. MENATETRENONE [Concomitant]
  5. MARZULENE S (LEVOGLUTAMIDE, SODIUM GUALENATE) [Concomitant]
  6. ENALAPRIL MALEATE [Concomitant]
  7. HAPSTAR (CAMPHOR, DIPHENHYDRAMINE HYDROCHLORIDE, ENOXOLONE, MENTHOL, M [Concomitant]
  8. NITROGLYCERIN [Concomitant]
  9. GLIBENCLAMIDE [Concomitant]
  10. SENNA LEAF [Concomitant]
  11. MELOXICAM [Concomitant]
  12. REBAMIPIDE [Concomitant]
  13. KETOPROFEN [Concomitant]

REACTIONS (6)
  - ASCITES [None]
  - CHOLELITHIASIS [None]
  - GALLBLADDER PERFORATION [None]
  - PANCREATIC DUCT OBSTRUCTION [None]
  - PANCREATITIS [None]
  - PERITONITIS [None]
